FAERS Safety Report 7291059-5 (Version None)
Quarter: 2011Q1

REPORT INFORMATION
  Report Type: 
  Country: None (occurrence: None)
  Receive Date: 20110214
  Receipt Date: 20110202
  Transmission Date: 20110831
  Serious: Yes (Hospitalization)
  Sender: FDA-Public Use
  Company Number: IT-JNJFOC-20100906575

PATIENT
  Sex: Male
  Weight: 47.7 kg

DRUGS (7)
  1. REMICADE [Suspect]
     Route: 042
  2. MESALAMINE [Concomitant]
     Route: 048
  3. AZATHIOPRINE [Concomitant]
  4. ANTIHISTAMINE [Concomitant]
  5. BUDESONIDE [Concomitant]
  6. REMICADE [Suspect]
     Indication: CROHN'S DISEASE
     Route: 042
  7. LANSOPRAZOLE [Concomitant]

REACTIONS (1)
  - CROHN'S DISEASE [None]
